FAERS Safety Report 6836722-2 (Version None)
Quarter: 2010Q3

REPORT INFORMATION
  Report Type: 
  Country: None (occurrence: None)
  Receive Date: 20100713
  Receipt Date: 20100702
  Transmission Date: 20110219
  Serious: Yes (Disabling)
  Sender: FDA-Public Use
  Company Number: FR-ELI_LILLY_AND_COMPANY-FR201007000530

PATIENT
  Age: 38 Year
  Sex: Male

DRUGS (1)
  1. CIALIS [Suspect]
     Dosage: 10 MG, UNKNOWN
     Route: 048
     Dates: start: 20100610

REACTIONS (1)
  - VIITH NERVE PARALYSIS [None]
